FAERS Safety Report 23942341 (Version 6)
Quarter: 2025Q4

REPORT INFORMATION
  Report Type: Spontaneous
  Country: US (occurrence: US)
  Receive Date: 20240605
  Receipt Date: 20251115
  Transmission Date: 20260118
  Serious: No
  Sender: SANOFI AVENTIS
  Company Number: US-SA-2024SA162642

PATIENT
  Age: 16 Year
  Sex: Male

DRUGS (4)
  1. ELOCTATE [Suspect]
     Active Substance: EFMOROCTOCOG ALFA
     Indication: Factor VIII deficiency
     Dosage: 2000 U, PRN (ON DAYS 1, 2, 4, AND 8 AS NEEDED)
     Route: 042
     Dates: start: 201911
  2. ELOCTATE [Suspect]
     Active Substance: EFMOROCTOCOG ALFA
     Indication: Factor VIII deficiency
     Dosage: 2000 U, PRN (ON DAYS 1, 2, 4, AND 8 AS NEEDED)
     Route: 042
     Dates: start: 201911
  3. HEMLIBRA [Concomitant]
     Active Substance: EMICIZUMAB-KXWH
     Indication: Prophylaxis
     Dosage: UNK
  4. AMINOCAPROIC ACID [Concomitant]
     Active Substance: AMINOCAPROIC ACID
     Dosage: UNK

REACTIONS (5)
  - Urticaria [Unknown]
  - Haemorrhage [Unknown]
  - Spontaneous haemorrhage [Recovered/Resolved]
  - Haemorrhage [Unknown]
  - Ligament sprain [Unknown]

NARRATIVE: CASE EVENT DATE: 20240512
